FAERS Safety Report 16861525 (Version 1)
Quarter: 2019Q3

REPORT INFORMATION
  Report Type: Spontaneous
  Country: US (occurrence: US)
  Receive Date: 20190927
  Receipt Date: 20190927
  Transmission Date: 20191005
  Serious: No
  Sender: FDA-Public Use
  Company Number: US-KARYOPHARM-2019KPT000471

PATIENT

DRUGS (1)
  1. XPOVIO [Suspect]
     Active Substance: SELINEXOR
     Indication: PLASMA CELL MYELOMA
     Dosage: 80 MG, 2X/WEEK (DAY 1 AND 3)
     Route: 048
     Dates: start: 20190820

REACTIONS (4)
  - Eye pain [Unknown]
  - Headache [Unknown]
  - Dizziness [Recovered/Resolved]
  - Nausea [Unknown]
